FAERS Safety Report 6723462-3 (Version None)
Quarter: 2010Q2

REPORT INFORMATION
  Report Type: 
  Country: None (occurrence: None)
  Receive Date: 20100513
  Receipt Date: 20100503
  Transmission Date: 20101027
  Serious: Yes (Hospitalization, Other)
  Sender: FDA-Public Use
  Company Number: US-NAPPMUNDI-USA-2010-0043668

PATIENT
  Age: 72 Year
  Sex: Male

DRUGS (3)
  1. OXYCONTIN [Suspect]
     Indication: CANCER PAIN
     Dosage: 30 MG, BID
     Route: 048
     Dates: start: 20100426, end: 20100427
  2. OXYCONTIN [Suspect]
     Indication: BACK PAIN
  3. NARCAN [Suspect]
     Indication: DRUG THERAPY
     Dosage: UNK
     Dates: start: 20100428

REACTIONS (10)
  - ABASIA [None]
  - AGGRESSION [None]
  - APHASIA [None]
  - CATATONIA [None]
  - CONFUSIONAL STATE [None]
  - DIZZINESS [None]
  - DYSURIA [None]
  - PAIN [None]
  - SCRATCH [None]
  - SCREAMING [None]
